FAERS Safety Report 5943658-8 (Version None)
Quarter: 2008Q4

REPORT INFORMATION
  Report Type: 
  Country: None (occurrence: None)
  Receive Date: 20081106
  Receipt Date: 20081028
  Transmission Date: 20090506
  Serious: Yes (Hospitalization, Disabling, Other)
  Sender: FDA-Public Use
  Company Number: US-PFIZER INC-2008035063

PATIENT
  Sex: Male
  Weight: 77.272 kg

DRUGS (3)
  1. NIFEDIPINE [Suspect]
     Indication: HYPERTENSION
     Route: 048
     Dates: start: 19900101
  2. NIFEDIPINE [Suspect]
     Route: 048
  3. ACETYLSALICYLIC ACID SRT [Concomitant]
     Indication: PROPHYLAXIS
     Dosage: DAILY DOSE:81MG

REACTIONS (5)
  - ANGINA PECTORIS [None]
  - BLINDNESS [None]
  - CONDITION AGGRAVATED [None]
  - DIZZINESS [None]
  - HYPERTENSION [None]
